FAERS Safety Report 5679161-2 (Version None)
Quarter: 2008Q1

REPORT INFORMATION
  Report Type: 
  Country: None (occurrence: None)
  Receive Date: 20080321
  Receipt Date: 20080306
  Transmission Date: 20080703
  Serious: Yes (Other)
  Sender: FDA-Public Use
  Company Number: 2008S1003955

PATIENT
  Sex: Female

DRUGS (6)
  1. PAROXETINE HCL [Suspect]
     Indication: DEPRESSION
     Dates: start: 19980601
  2. ALCOHOL /00002101/ [Concomitant]
  3. AMITRIPTYLINE HCL [Concomitant]
  4. DIAZEPAM [Concomitant]
  5. NATURAL HRT [Concomitant]
  6. PREMPAK-C /00445901/ [Concomitant]

REACTIONS (21)
  - ALCOHOL ABUSE [None]
  - ASTHMA [None]
  - CONDITION AGGRAVATED [None]
  - CONFUSIONAL STATE [None]
  - DELUSION [None]
  - DEPRESSED MOOD [None]
  - DIABETES MELLITUS [None]
  - DISSOCIATION [None]
  - DIZZINESS [None]
  - DRUG WITHDRAWAL SYNDROME [None]
  - FEELING ABNORMAL [None]
  - FLASHBACK [None]
  - ILL-DEFINED DISORDER [None]
  - INAPPROPRIATE SCHEDULE OF DRUG ADMINISTRATION [None]
  - MALAISE [None]
  - OVERDOSE [None]
  - PERSONALITY DISORDER [None]
  - POST-TRAUMATIC STRESS DISORDER [None]
  - PSYCHOTIC DISORDER [None]
  - SCIATICA [None]
  - SUICIDAL IDEATION [None]
